FAERS Safety Report 20543999 (Version 2)
Quarter: 2022Q1

REPORT INFORMATION
  Report Type: Spontaneous
  Country: CN (occurrence: CN)
  Receive Date: 20220303
  Receipt Date: 20220328
  Transmission Date: 20220423
  Serious: Yes (Hospitalization)
  Sender: FDA-Public Use
  Company Number: CN-SA-SAC20220228001540

PATIENT
  Age: 78 Year
  Sex: Female
  Weight: 65 kg

DRUGS (2)
  1. OXALIPLATIN [Suspect]
     Active Substance: OXALIPLATIN
     Indication: Colon cancer
     Dosage: 140 MG, QD
     Route: 041
     Dates: start: 20220118, end: 20220118
  2. DEXTROSE [Concomitant]
     Active Substance: DEXTROSE
     Indication: Colon cancer
     Dosage: 500 ML, QD
     Route: 041
     Dates: start: 20220118, end: 20220118

REACTIONS (3)
  - Chest discomfort [Recovering/Resolving]
  - Cough [Recovering/Resolving]
  - Tachypnoea [Recovering/Resolving]

NARRATIVE: CASE EVENT DATE: 20220118
